FAERS Safety Report 19453927 (Version 2)
Quarter: 2021Q3

REPORT INFORMATION
  Report Type: Spontaneous
  Country: US (occurrence: US)
  Receive Date: 20210623
  Receipt Date: 20210706
  Transmission Date: 20211014
  Serious: No
  Sender: FDA-Public Use
  Company Number: NVSC2021US139703

PATIENT
  Sex: Female

DRUGS (1)
  1. TOBRADEX [Suspect]
     Active Substance: DEXAMETHASONE\TOBRAMYCIN
     Indication: PSORIASIS
     Dosage: UNK
     Route: 065
     Dates: start: 2014

REACTIONS (2)
  - Hair growth abnormal [Unknown]
  - Product use in unapproved indication [Unknown]
